FAERS Safety Report 17426547 (Version 1)
Quarter: 2020Q1

REPORT INFORMATION
  Report Type: Spontaneous
  Country: US (occurrence: US)
  Receive Date: 20200218
  Receipt Date: 20200218
  Transmission Date: 20200409
  Serious: No
  Sender: FDA-Public Use
  Company Number: US-ASTRAZENECA-2020SE23308

PATIENT
  Age: 54 Year
  Sex: Female

DRUGS (2)
  1. ZOLADEX [Suspect]
     Active Substance: GOSERELIN ACETATE
     Indication: PRODUCT USED FOR UNKNOWN INDICATION
     Dosage: UNK
     Route: 058
  2. FASLODEX [Suspect]
     Active Substance: FULVESTRANT
     Indication: PRODUCT USED FOR UNKNOWN INDICATION
     Dosage: UNK
     Route: 030

REACTIONS (13)
  - Dyspnoea [Unknown]
  - Fatigue [Unknown]
  - Hot flush [Unknown]
  - Lacrimation increased [Unknown]
  - Injection site pain [Unknown]
  - Rash [Unknown]
  - Arthralgia [Unknown]
  - Oral pain [Unknown]
  - Headache [Unknown]
  - Disturbance in attention [Unknown]
  - Sleep disorder [Unknown]
  - Amenorrhoea [Unknown]
  - Nail ridging [Unknown]
